FAERS Safety Report 11077758 (Version 1)
Quarter: 2015Q2

REPORT INFORMATION
  Report Type: Spontaneous
  Country: DE (occurrence: DE)
  Receive Date: 20150430
  Receipt Date: 20150430
  Transmission Date: 20150821
  Serious: Yes (Other)
  Sender: FDA-Public Use
  Company Number: DE-AMGEN-DEUSP2015041662

PATIENT
  Age: 5 Year
  Sex: Male

DRUGS (1)
  1. ENBREL [Suspect]
     Active Substance: ETANERCEPT
     Indication: RHEUMATOID ARTHRITIS
     Dosage: 0.4 MG/KG, 2X/WEEK
     Route: 065
     Dates: start: 20150331

REACTIONS (2)
  - Haematochezia [Unknown]
  - Epistaxis [Unknown]

NARRATIVE: CASE EVENT DATE: 20150419
